FAERS Safety Report 7097543-1 (Version None)
Quarter: 2010Q4

REPORT INFORMATION
  Report Type: 
  Country: None (occurrence: None)
  Receive Date: 20101111
  Receipt Date: 20101102
  Transmission Date: 20110411
  Serious: Yes (Death, Hospitalization, Other)
  Sender: FDA-Public Use
  Company Number: US-AMGEN-QUU398992

PATIENT

DRUGS (17)
  1. NPLATE [Suspect]
     Indication: IDIOPATHIC THROMBOCYTOPENIC PURPURA
     Dosage: 8 A?G/KG, UNK
     Route: 058
     Dates: start: 20080925, end: 20081031
  2. NPLATE [Suspect]
     Dates: start: 20080925
  3. CORTICOSTEROID NOS [Concomitant]
  4. DANAZOL [Concomitant]
  5. OMEPRAZOLE [Concomitant]
  6. GABAPENTIN [Concomitant]
  7. AMINOCAPROIC ACID [Concomitant]
  8. PROCHLORPERAZINE EDISYLATE [Concomitant]
  9. QUETIAPINE [Concomitant]
  10. PREDNISONE [Concomitant]
  11. POTASSIUM CHLORIDE [Concomitant]
  12. SENNA [Concomitant]
  13. MORPHINE SULFATE [Concomitant]
  14. NYSTATIN [Concomitant]
  15. INSULIN [Concomitant]
  16. METOCLOPRAMIDE [Concomitant]
  17. HALOPERIDOL [Concomitant]

REACTIONS (4)
  - BONE MARROW DISORDER [None]
  - DRUG INEFFECTIVE [None]
  - HAEMORRHAGE INTRACRANIAL [None]
  - THROMBOCYTOPENIA [None]
